FAERS Safety Report 10265785 (Version 1)
Quarter: 2014Q2

REPORT INFORMATION
  Report Type: Spontaneous
  Country: US (occurrence: US)
  Receive Date: 20140627
  Receipt Date: 20140627
  Transmission Date: 20141212
  Serious: Yes (Hospitalization)
  Sender: FDA-Public Use
  Company Number: US-GLAXOSMITHKLINE-A1077854A

PATIENT
  Age: 64 Year
  Sex: Male

DRUGS (4)
  1. ADVAIR [Suspect]
     Indication: WHEEZING
     Dosage: 1PUFF UNKNOWN
     Route: 055
     Dates: start: 200903
  2. ATROVENT [Suspect]
     Indication: PRODUCT USED FOR UNKNOWN INDICATION
     Route: 065
  3. ASPIRIN [Suspect]
     Indication: PRODUCT USED FOR UNKNOWN INDICATION
     Route: 065
  4. UNSPECIFIED INHALER [Concomitant]
     Indication: PRODUCT USED FOR UNKNOWN INDICATION
     Route: 065

REACTIONS (16)
  - Investigation [Unknown]
  - Drug dependence [Unknown]
  - Emergency care examination [Unknown]
  - Emphysema [Unknown]
  - Gastric disorder [Unknown]
  - Abdominal discomfort [Unknown]
  - Epigastric discomfort [Unknown]
  - Food intolerance [Unknown]
  - Weight decreased [Unknown]
  - Dyspnoea [Unknown]
  - Quality of life decreased [Unknown]
  - Feeling abnormal [Unknown]
  - Adverse event [Unknown]
  - Drug dose omission [Unknown]
  - Drug ineffective [Unknown]
  - Off label use [Unknown]
